FAERS Safety Report 10801770 (Version 1)
Quarter: 2015Q1

REPORT INFORMATION
  Report Type: Spontaneous
  Country: CZ (occurrence: CZ)
  Receive Date: 20150217
  Receipt Date: 20150217
  Transmission Date: 20150721
  Serious: Yes (Other)
  Sender: FDA-Public Use
  Company Number: CZ-ROCHE-1539667

PATIENT
  Age: 75 Year
  Sex: Female

DRUGS (2)
  1. BONVIVA [Suspect]
     Active Substance: IBANDRONATE SODIUM
     Indication: OSTEOPOROSIS POSTMENOPAUSAL
     Dosage: FIRST CYCLE OF TREATMENT
     Route: 048
     Dates: start: 2014
  2. BONVIVA [Suspect]
     Active Substance: IBANDRONATE SODIUM
     Dosage: 2ND CYCLE OF TREATMENT
     Route: 048
     Dates: start: 201411, end: 201501

REACTIONS (5)
  - Oropharyngeal plaque [Not Recovered/Not Resolved]
  - Gingival pain [Not Recovered/Not Resolved]
  - Myalgia [Not Recovered/Not Resolved]
  - Arthralgia [Not Recovered/Not Resolved]
  - Herpes zoster [Not Recovered/Not Resolved]

NARRATIVE: CASE EVENT DATE: 201411
